FAERS Safety Report 8660599 (Version 2)
Quarter: 2012Q4

REPORT INFORMATION
  Report Type: 
  Country: US (occurrence: US)
  Receive Date: 20120711
  Receipt Date: 20121001
  Transmission Date: 20130627
  Serious: No
  Sender: FDA-Public Use
  Company Number: US-009507513-1207USA000373

PATIENT

DRUGS (1)
  1. ZETIA [Suspect]
     Dosage: 10 mg, UNK

REACTIONS (1)
  - Back pain [Recovered/Resolved]
